FAERS Safety Report 7543492-1 (Version None)
Quarter: 2011Q2

REPORT INFORMATION
  Report Type: 
  Country: None (occurrence: None)
  Receive Date: 20110613
  Receipt Date: 20110603
  Transmission Date: 20111010
  Serious: Yes (Hospitalization)
  Sender: FDA-Public Use
  Company Number: US-NOVOPROD-329334

PATIENT
  Age: 58 Year
  Sex: Female
  Weight: 104.31 kg

DRUGS (7)
  1. LEVEMIR [Suspect]
     Indication: TYPE 2 DIABETES MELLITUS
     Dosage: 26 U, QD
     Route: 058
     Dates: start: 20100101
  2. LOSARTAN POTASSIUM [Concomitant]
     Indication: PROPHYLAXIS
     Dosage: 25 MG, QD
     Route: 048
  3. METOPROLOL SUCCINATE [Concomitant]
     Indication: ANGINA PECTORIS
     Dosage: 100 MG, BID
     Route: 048
  4. METOPROLOL SUCCINATE [Concomitant]
     Indication: CARDIAC FAILURE CONGESTIVE
  5. JANUMET [Concomitant]
     Indication: TYPE 2 DIABETES MELLITUS
     Dosage: 1 TAB, BID
     Route: 048
  6. IMDUR [Concomitant]
     Indication: CARDIAC FAILURE CONGESTIVE
  7. IMDUR [Concomitant]
     Indication: ANGINA PECTORIS
     Dosage: 50 MG, BID
     Route: 048

REACTIONS (1)
  - MYOCARDIAL INFARCTION [None]
